FAERS Safety Report 4955017-5 (Version None)
Quarter: 2006Q1

REPORT INFORMATION
  Report Type: 
  Country: None (occurrence: None)
  Receive Date: 20060322
  Receipt Date: 20060308
  Transmission Date: 20060701
  Serious: No
  Sender: FDA-Public Use
  Company Number: 200610588BWH

PATIENT
  Sex: Female
  Weight: 49.8957 kg

DRUGS (1)
  1. AVELOX [Suspect]
     Indication: RESPIRATORY TRACT INFECTION
     Dosage: 400 MG

REACTIONS (3)
  - PAIN OF SKIN [None]
  - SEBORRHOEIC DERMATITIS [None]
  - SKIN CANDIDA [None]
